FAERS Safety Report 10700878 (Version 1)
Quarter: 2014Q4

REPORT INFORMATION
  Report Type: Spontaneous
  Country: US (occurrence: None)
  Receive Date: 20141224
  Receipt Date: 20141224
  Transmission Date: 20150529
  Serious: Yes (Hospitalization)
  Sender: FDA-Public Use
  Company Number: PHEH2014US003133

PATIENT
  Age: 61 Year
  Sex: Female

DRUGS (12)
  1. CLOZARIL [Suspect]
     Active Substance: CLOZAPINE
     Route: 048
  2. SPIRIVA (TIOTROPIUM BROMIDE) [Concomitant]
  3. CHOLECALCIFEROL (COLECALCIFEROL) [Concomitant]
  4. WELLBUTRIN [Concomitant]
     Active Substance: BUPROPION HYDROCHLORIDE
  5. MONTELUKAST [Concomitant]
     Active Substance: MONTELUKAST SODIUM
  6. NASONEX [Concomitant]
     Active Substance: MOMETASONE FUROATE
  7. FLUDROCORTISONE [Concomitant]
     Active Substance: FLUDROCORTISONE
  8. LEVOTHYROXINE [Concomitant]
     Active Substance: LEVOTHYROXINE
  9. PROAIR HFA (ALBUTEROL SULFATE) INHALATION AEROSOL (SALBUTAMOL SULFATE) [Concomitant]
  10. ADVAIR DISKUS (FLUTICASONE PROPIONATE, SALMETEROL XINAFOATE) [Concomitant]
  11. LORATADINE. [Concomitant]
     Active Substance: LORATADINE
  12. ADDERALL [Concomitant]
     Active Substance: AMPHETAMINE ASPARTATE\AMPHETAMINE SULFATE\DEXTROAMPHETAMINE SACCHARATE\DEXTROAMPHETAMINE SULFATE

REACTIONS (10)
  - Monocyte count increased [None]
  - Leukocytosis [None]
  - Red blood cell count decreased [None]
  - Neutrophil count increased [None]
  - Mean cell haemoglobin concentration decreased [None]
  - Mean platelet volume increased [None]
  - Haematocrit decreased [None]
  - Eosinophil count decreased [None]
  - Pneumonia [None]
  - Haemoglobin decreased [None]

NARRATIVE: CASE EVENT DATE: 20131022
